FAERS Safety Report 20369846 (Version 1)
Quarter: 2022Q1

REPORT INFORMATION
  Report Type: Spontaneous
  Country: FR (occurrence: FR)
  Receive Date: 20220124
  Receipt Date: 20220124
  Transmission Date: 20220423
  Serious: Yes (Hospitalization)
  Sender: FDA-Public Use
  Company Number: None

PATIENT
  Age: 68 Year
  Sex: Female

DRUGS (3)
  1. FLUOROURACIL [Suspect]
     Active Substance: FLUOROURACIL
     Indication: Pharyngeal cancer
     Dosage: 1475 MG
     Route: 042
     Dates: start: 20211029, end: 20211101
  2. CISPLATIN [Concomitant]
     Active Substance: CISPLATIN
     Indication: Pharyngeal cancer
  3. DOCETAXEL [Concomitant]
     Active Substance: DOCETAXEL
     Indication: Pharyngeal cancer

REACTIONS (4)
  - Cardiac failure [Not Recovered/Not Resolved]
  - Hyperthermia [Recovered/Resolved]
  - Hypotension [Recovered/Resolved]
  - Tachycardia [Recovered/Resolved]

NARRATIVE: CASE EVENT DATE: 20211101
